FAERS Safety Report 6168905-1 (Version None)
Quarter: 2009Q2

REPORT INFORMATION
  Report Type: 
  Country: None (occurrence: None)
  Receive Date: 20090427
  Receipt Date: 20090414
  Transmission Date: 20091009
  Serious: Yes (Other)
  Sender: FDA-Public Use
  Company Number: PHHY2009GB11496

PATIENT
  Sex: Female

DRUGS (1)
  1. NILOTINIB [Suspect]
     Dosage: 400 MG, BID
     Route: 048
     Dates: start: 20081222

REACTIONS (4)
  - COUGH [None]
  - DYSPNOEA [None]
  - PALPITATIONS [None]
  - RASH [None]
